FAERS Safety Report 4436793-7 (Version None)
Quarter: 2004Q3

REPORT INFORMATION
  Report Type: 
  Country: None (occurrence: None)
  Receive Date: 20040830
  Receipt Date: 20040818
  Transmission Date: 20050211
  Serious: Yes (Death)
  Sender: FDA-Public Use
  Company Number: BE-JNJFOC-20040707964

PATIENT
  Age: 74 Year
  Sex: Female

DRUGS (9)
  1. CISAPRIDE [Suspect]
     Indication: DIABETIC GASTROPARESIS
     Route: 049
  2. CREON [Concomitant]
  3. MIXTARD HUMAN 70/30 [Concomitant]
  4. MIXTARD HUMAN 70/30 [Concomitant]
  5. PANTOPRAZOLE SODIUM [Concomitant]
  6. ZIRTEC [Concomitant]
  7. RIVOTRIL [Concomitant]
  8. SERTRALINE HCL [Concomitant]
  9. RISPERDAL [Concomitant]

REACTIONS (22)
  - ANOREXIA [None]
  - AORTIC VALVE CALCIFICATION [None]
  - BILIRUBIN CONJUGATED INCREASED [None]
  - BLOOD BILIRUBIN INCREASED [None]
  - BLOOD POTASSIUM DECREASED [None]
  - BLOOD SODIUM DECREASED [None]
  - CANDIDIASIS [None]
  - CHEST X-RAY ABNORMAL [None]
  - CHOLESTASIS [None]
  - DECUBITUS ULCER [None]
  - DEHYDRATION [None]
  - ESCHERICHIA SEPSIS [None]
  - ESCHERICHIA URINARY TRACT INFECTION [None]
  - GENERAL PHYSICAL HEALTH DETERIORATION [None]
  - HAEMATOCHEZIA [None]
  - HAEMATURIA [None]
  - INCONTINENCE [None]
  - MALIGNANT NEOPLASM PROGRESSION [None]
  - MALNUTRITION [None]
  - MITRAL VALVE CALCIFICATION [None]
  - PULMONARY EMBOLISM [None]
  - THERAPY NON-RESPONDER [None]
